FAERS Safety Report 20834624 (Version 7)
Quarter: 2022Q4

REPORT INFORMATION
  Report Type: Spontaneous
  Country: GB (occurrence: GB)
  Receive Date: 20220516
  Receipt Date: 20221020
  Transmission Date: 20230112
  Serious: Yes (Hospitalization, Other)
  Sender: FDA-Public Use
  Company Number: None

PATIENT
  Age: 86 Year
  Sex: Female

DRUGS (288)
  1. APIXABAN [Suspect]
     Active Substance: APIXABAN
     Indication: Cerebrovascular accident prophylaxis
     Dosage: 5 MG, QD
     Route: 048
     Dates: start: 20180207
  2. APIXABAN [Suspect]
     Active Substance: APIXABAN
     Indication: Atrial fibrillation
     Dosage: 5 MG, QD
     Route: 065
  3. APIXABAN [Suspect]
     Active Substance: APIXABAN
     Dosage: 10 MG, QD, OLU: OFF LABEL DOSING FREQUENCY
     Route: 042
  4. APIXABAN [Suspect]
     Active Substance: APIXABAN
     Dosage: 10 MG, QD, OFF LABEL DOSING FREQUENCY
     Route: 042
  5. APIXABAN [Suspect]
     Active Substance: APIXABAN
     Dosage: 5 MG, QD
     Route: 065
  6. APIXABAN [Suspect]
     Active Substance: APIXABAN
     Dosage: 10 MG, QD (1 DAY), DOSAGE FORM: UNSPECIFIED; OLU: OFF LABEL DOSING FREQUENCY
     Route: 065
     Dates: end: 20180207
  7. APIXABAN [Suspect]
     Active Substance: APIXABAN
     Dosage: 10 MG, QD
     Route: 065
  8. APIXABAN [Suspect]
     Active Substance: APIXABAN
     Dosage: 5 MG
     Route: 065
     Dates: end: 20180207
  9. APIXABAN [Suspect]
     Active Substance: APIXABAN
     Dosage: 10 MG, QD
     Route: 065
  10. APIXABAN [Suspect]
     Active Substance: APIXABAN
     Dosage: 5 MG, QD
     Route: 042
  11. APIXABAN [Suspect]
     Active Substance: APIXABAN
     Dosage: 5 MG, QD
     Route: 042
  12. APIXABAN [Suspect]
     Active Substance: APIXABAN
     Dosage: 10 MG, QD
     Route: 042
  13. APIXABAN [Suspect]
     Active Substance: APIXABAN
     Dosage: 5 MG, QD
     Route: 048
  14. APIXABAN [Suspect]
     Active Substance: APIXABAN
     Dosage: UNK
     Route: 065
  15. APIXABAN [Suspect]
     Active Substance: APIXABAN
     Dosage: 5 MG, QD
     Route: 065
  16. APIXABAN [Suspect]
     Active Substance: APIXABAN
     Dosage: 10 MG, QD
     Route: 065
  17. APIXABAN [Suspect]
     Active Substance: APIXABAN
     Dosage: 5 MG, QD
     Route: 042
  18. APIXABAN [Suspect]
     Active Substance: APIXABAN
     Dosage: 10 MG, QD
     Route: 042
  19. APIXABAN [Suspect]
     Active Substance: APIXABAN
     Dosage: 5 MG
     Route: 042
  20. APIXABAN [Suspect]
     Active Substance: APIXABAN
     Dosage: 5 MG, QD
     Route: 065
  21. APIXABAN [Suspect]
     Active Substance: APIXABAN
     Dosage: 5 MG, QD; OLU: OFF LABEL DOSING FREQUENCY
     Route: 065
  22. APIXABAN [Suspect]
     Active Substance: APIXABAN
     Dosage: 10 MG, QD
     Route: 065
  23. APIXABAN [Suspect]
     Active Substance: APIXABAN
     Dosage: 10 MG, QD
     Route: 065
     Dates: end: 20180207
  24. BISOPROLOL FUMARATE [Suspect]
     Active Substance: BISOPROLOL FUMARATE
     Indication: Cerebrovascular accident prophylaxis
     Dosage: 5 MG, QD
     Route: 048
     Dates: end: 20180207
  25. BISOPROLOL FUMARATE [Suspect]
     Active Substance: BISOPROLOL FUMARATE
     Dosage: 5 MG, QD, OFF LABEL USE
     Route: 048
  26. BISOPROLOL FUMARATE [Suspect]
     Active Substance: BISOPROLOL FUMARATE
     Dosage: 5 MG, QD
     Route: 065
     Dates: end: 20180207
  27. BISOPROLOL FUMARATE [Suspect]
     Active Substance: BISOPROLOL FUMARATE
     Dosage: 10 MG, QD
     Route: 065
  28. BISOPROLOL FUMARATE [Suspect]
     Active Substance: BISOPROLOL FUMARATE
     Dosage: 10 MG, QD
     Route: 048
  29. BISOPROLOL FUMARATE [Suspect]
     Active Substance: BISOPROLOL FUMARATE
     Dosage: 5 MG, QD; OFF LABEL USE
     Route: 065
  30. BISOPROLOL FUMARATE [Suspect]
     Active Substance: BISOPROLOL FUMARATE
     Dosage: 5 MG, QD
     Route: 048
  31. BISOPROLOL FUMARATE [Suspect]
     Active Substance: BISOPROLOL FUMARATE
     Dosage: 10 MG, QD; 10 MG/ML
     Route: 050
  32. BISOPROLOL FUMARATE [Suspect]
     Active Substance: BISOPROLOL FUMARATE
     Dosage: 5 MG, QD
     Route: 048
  33. BISOPROLOL FUMARATE [Suspect]
     Active Substance: BISOPROLOL FUMARATE
     Dosage: 5 MG, QD; OFF LABEL USE
     Route: 048
  34. BISOPROLOL FUMARATE [Suspect]
     Active Substance: BISOPROLOL FUMARATE
     Dosage: 10 MG (1 DAY) 10 MG, QD
     Route: 065
  35. BISOPROLOL FUMARATE [Suspect]
     Active Substance: BISOPROLOL FUMARATE
     Dosage: 10 MG (1 DAY)10 MG, QD; OFF LABEL USE
     Route: 065
  36. BISOPROLOL FUMARATE [Suspect]
     Active Substance: BISOPROLOL FUMARATE
     Dosage: 10 MG (1 DAY) 10 MG, QD
     Route: 048
  37. BISOPROLOL FUMARATE [Suspect]
     Active Substance: BISOPROLOL FUMARATE
     Dosage: 10 MG, QD
     Route: 050
  38. BISOPROLOL FUMARATE [Suspect]
     Active Substance: BISOPROLOL FUMARATE
     Dosage: 5 MG, QD; OFF LABEL USE
     Route: 048
  39. BISOPROLOL FUMARATE [Suspect]
     Active Substance: BISOPROLOL FUMARATE
     Dosage: 10 MG (1 DAY) 10 MG, QD; OFF LABEL USE
     Route: 048
  40. BISOPROLOL FUMARATE [Suspect]
     Active Substance: BISOPROLOL FUMARATE
     Dosage: 10 MG, QD, OFF LABEL USE
     Route: 065
  41. BISOPROLOL FUMARATE [Suspect]
     Active Substance: BISOPROLOL FUMARATE
     Dosage: 10 MG, QD
     Route: 048
  42. BISOPROLOL FUMARATE [Suspect]
     Active Substance: BISOPROLOL FUMARATE
     Dosage: 10 MG, QD; 10 MG/ML
     Route: 048
  43. BISOPROLOL FUMARATE [Suspect]
     Active Substance: BISOPROLOL FUMARATE
     Dosage: 10 MG, QD
     Route: 065
  44. BISOPROLOL FUMARATE [Suspect]
     Active Substance: BISOPROLOL FUMARATE
     Dosage: 5 MG, QD
     Route: 048
  45. BISOPROLOL FUMARATE [Suspect]
     Active Substance: BISOPROLOL FUMARATE
     Dosage: 10 MG (1 DAY) 10 MG, QD; OFF LABEL USE
     Route: 065
  46. BISOPROLOL FUMARATE [Suspect]
     Active Substance: BISOPROLOL FUMARATE
     Dosage: 5 MG, QD; OFF LABEL USE
     Route: 048
     Dates: start: 20180207
  47. BISOPROLOL FUMARATE [Suspect]
     Active Substance: BISOPROLOL FUMARATE
     Dosage: 5 MG, QD
     Route: 048
  48. BISOPROLOL FUMARATE [Suspect]
     Active Substance: BISOPROLOL FUMARATE
     Dosage: 5 MG, QD; OFF LABEL USE
     Route: 048
  49. BISOPROLOL FUMARATE [Suspect]
     Active Substance: BISOPROLOL FUMARATE
     Dosage: 5 MG, QD
     Route: 050
  50. BISOPROLOL FUMARATE [Suspect]
     Active Substance: BISOPROLOL FUMARATE
     Dosage: 5 MG, QD; OFF LABEL USE
     Route: 050
     Dates: end: 20180207
  51. CANDESARTAN CILEXETIL [Suspect]
     Active Substance: CANDESARTAN CILEXETIL
     Indication: Cerebrovascular accident prophylaxis
     Dosage: 2 MG, QD (MORNING)
     Route: 048
  52. CANDESARTAN CILEXETIL [Suspect]
     Active Substance: CANDESARTAN CILEXETIL
     Dosage: 10 MG, QD
     Route: 048
  53. CANDESARTAN CILEXETIL [Suspect]
     Active Substance: CANDESARTAN CILEXETIL
     Dosage: UNK
     Route: 065
  54. CANDESARTAN CILEXETIL [Suspect]
     Active Substance: CANDESARTAN CILEXETIL
     Dosage: 1 DOSAGE FORM, QD ,MORNING, INGREDIENT CETRIZINE 10 MG HYDROCHLOROTHIADIDE 2MG
     Route: 048
  55. CANDESARTAN CILEXETIL [Suspect]
     Active Substance: CANDESARTAN CILEXETIL
     Dosage: 2 MG, QD (MORNING)
     Route: 048
  56. CANDESARTAN CILEXETIL [Suspect]
     Active Substance: CANDESARTAN CILEXETIL
     Dosage: UNK; OFF LABEL USE
     Route: 065
  57. CANDESARTAN CILEXETIL [Suspect]
     Active Substance: CANDESARTAN CILEXETIL
     Dosage: 10 MG, QD
     Route: 048
  58. CANDESARTAN CILEXETIL [Suspect]
     Active Substance: CANDESARTAN CILEXETIL
     Dosage: 10 MG, QD
     Route: 048
  59. CANDESARTAN CILEXETIL [Suspect]
     Active Substance: CANDESARTAN CILEXETIL
     Dosage: 2 MG, QD
     Route: 048
  60. CANDESARTAN CILEXETIL [Suspect]
     Active Substance: CANDESARTAN CILEXETIL
     Dosage: 2 MG, QD (MORNING)
     Route: 048
  61. CANDESARTAN CILEXETIL [Suspect]
     Active Substance: CANDESARTAN CILEXETIL
     Dosage: 2 MG, QD (MORNING)
     Route: 048
  62. CANDESARTAN CILEXETIL [Suspect]
     Active Substance: CANDESARTAN CILEXETIL
     Dosage: 2 MG,QD (MORNING)
     Route: 048
  63. CANDESARTAN CILEXETIL [Suspect]
     Active Substance: CANDESARTAN CILEXETIL
     Dosage: 2 MG, QD (MORNING)
     Route: 048
  64. CANDESARTAN CILEXETIL [Suspect]
     Active Substance: CANDESARTAN CILEXETIL
     Dosage: 10 MG, QMO 10 MG, ONCE DAILY (QD)
     Route: 048
  65. CANDESARTAN CILEXETIL [Suspect]
     Active Substance: CANDESARTAN CILEXETIL
     Dosage: 2 MG, QD (MORNING)
     Route: 048
  66. CANDESARTAN CILEXETIL [Suspect]
     Active Substance: CANDESARTAN CILEXETIL
     Dosage: 2 MG, QD (MORNING)
     Route: 048
  67. CANDESARTAN CILEXETIL [Suspect]
     Active Substance: CANDESARTAN CILEXETIL
     Dosage: 2 MG, QD (MORNING)
     Route: 048
  68. CANDESARTAN CILEXETIL [Suspect]
     Active Substance: CANDESARTAN CILEXETIL
     Dosage: 2 MG, ONCE DAILY (QD) (MORNING)
     Route: 065
  69. CANDESARTAN CILEXETIL [Suspect]
     Active Substance: CANDESARTAN CILEXETIL
     Dosage: 2 MG ONCE DAILY/ 2 MG, QD MORNING
     Route: 065
  70. CANDESARTAN CILEXETIL [Suspect]
     Active Substance: CANDESARTAN CILEXETIL
     Dosage: UNK
     Route: 065
  71. CANDESARTAN CILEXETIL [Suspect]
     Active Substance: CANDESARTAN CILEXETIL
     Dosage: 2 MG, QD (MORNING)
     Route: 048
  72. CANDESARTAN CILEXETIL [Suspect]
     Active Substance: CANDESARTAN CILEXETIL
     Dosage: 2 MG, QD (MORNING)
     Route: 048
  73. CANDESARTAN CILEXETIL [Suspect]
     Active Substance: CANDESARTAN CILEXETIL
     Dosage: 2 MG, QD (MORNING)
     Route: 048
  74. CANDESARTAN CILEXETIL [Suspect]
     Active Substance: CANDESARTAN CILEXETIL
     Dosage: 10 MG, QMO, 10 MG, ONCE DAILY (QD) MORNING
     Route: 048
  75. CANDESARTAN CILEXETIL [Suspect]
     Active Substance: CANDESARTAN CILEXETIL
     Dosage: 2 MG, QD (MORNING)
     Route: 065
  76. CANDESARTAN CILEXETIL [Suspect]
     Active Substance: CANDESARTAN CILEXETIL
     Dosage: 2 MG, QD (MORNING)
     Route: 065
  77. CANDESARTAN CILEXETIL [Suspect]
     Active Substance: CANDESARTAN CILEXETIL
     Dosage: 2 MG, QD (MORNING)
     Route: 048
  78. CANDESARTAN CILEXETIL [Suspect]
     Active Substance: CANDESARTAN CILEXETIL
     Dosage: UNK
     Route: 065
  79. CANDESARTAN CILEXETIL [Suspect]
     Active Substance: CANDESARTAN CILEXETIL
     Dosage: 2 MG, QD (MORNING)
     Route: 048
  80. SIMVASTATIN [Suspect]
     Active Substance: SIMVASTATIN
     Indication: Product used for unknown indication
     Dosage: 40 MG, QD (NIGHT)
     Route: 048
  81. SIMVASTATIN [Suspect]
     Active Substance: SIMVASTATIN
     Dosage: UNK
     Route: 065
  82. SIMVASTATIN [Suspect]
     Active Substance: SIMVASTATIN
     Dosage: 40 MG, ONCE DAILY QD (NIGHT)
     Route: 048
  83. SIMVASTATIN [Suspect]
     Active Substance: SIMVASTATIN
     Dosage: 40 MG, QD
     Route: 065
  84. SIMVASTATIN [Suspect]
     Active Substance: SIMVASTATIN
     Dosage: 40 MG, QD (NIGHT)
     Route: 050
  85. SIMVASTATIN [Suspect]
     Active Substance: SIMVASTATIN
     Dosage: 40 MG, QD (NIGHT)
     Route: 065
  86. SIMVASTATIN [Suspect]
     Active Substance: SIMVASTATIN
     Dosage: 40 MG, QD (40 MILLIGRAM, ID, NIGHT)
     Route: 048
  87. SIMVASTATIN [Suspect]
     Active Substance: SIMVASTATIN
     Dosage: 40 MILLIGRAM, QD
     Route: 065
  88. SIMVASTATIN [Suspect]
     Active Substance: SIMVASTATIN
     Dosage: 40 MG, ONCE DAILY QD (NIGHT)
     Route: 065
  89. SIMVASTATIN [Suspect]
     Active Substance: SIMVASTATIN
     Dosage: 40 MG, QD
     Route: 065
  90. SIMVASTATIN [Suspect]
     Active Substance: SIMVASTATIN
     Dosage: 40 MG, ONCE DAILY QD (NIGHT)
     Route: 065
  91. SIMVASTATIN [Suspect]
     Active Substance: SIMVASTATIN
     Dosage: 40 MG, QD ONCE A DAY
     Route: 065
  92. SIMVASTATIN [Suspect]
     Active Substance: SIMVASTATIN
     Dosage: 40 MG, ONCE DAILY QD (NIGHT)
     Route: 048
  93. SIMVASTATIN [Suspect]
     Active Substance: SIMVASTATIN
     Indication: Product used for unknown indication
     Dosage: 40 MG, QD (NIGHT) (POWDER FOR INFUSION)
     Route: 048
  94. SIMVASTATIN [Suspect]
     Active Substance: SIMVASTATIN
     Dosage: 40 MG, QD HS (POWDER FOR INFUSION)
     Route: 065
  95. SIMVASTATIN [Suspect]
     Active Substance: SIMVASTATIN
     Dosage: 40 MG, QD (POWDER FOR INFUSION)
     Route: 065
  96. SIMVASTATIN [Suspect]
     Active Substance: SIMVASTATIN
     Dosage: 40 MG, QD (HS (POWDER FOR INFUSION)
     Route: 065
  97. SIMVASTATIN [Suspect]
     Active Substance: SIMVASTATIN
     Dosage: 40 MG, QD (NIGHT), POWDER FOR INFUSION
     Route: 065
  98. SIMVASTATIN [Suspect]
     Active Substance: SIMVASTATIN
     Dosage: 40 MG, ONCE DAILY (QD) (NIGHT), POWDER FOR INFUSION
     Route: 065
  99. SIMVASTATIN [Suspect]
     Active Substance: SIMVASTATIN
     Dosage: 40 MG, ONCE DAILY (QD) (NIGHT), POWDER FOR INFUSION
     Route: 065
  100. SIMVASTATIN [Suspect]
     Active Substance: SIMVASTATIN
     Dosage: 40 MG, ONCE DAILY (QD) (NIGHT), POWDER FOR INFUSION
     Route: 065
  101. SIMVASTATIN [Suspect]
     Active Substance: SIMVASTATIN
     Dosage: 40 MG, HS, POWDER FOR INFUSION
     Route: 065
  102. SIMVASTATIN [Suspect]
     Active Substance: SIMVASTATIN
     Dosage: 40 MG, ONCE DAILY (QD) (NIGHT), POWDER FOR INFUSION
     Route: 048
  103. SIMVASTATIN [Suspect]
     Active Substance: SIMVASTATIN
     Indication: Product used for unknown indication
     Dosage: 40 MG, QD
     Route: 065
  104. SIMVASTATIN [Suspect]
     Active Substance: SIMVASTATIN
     Dosage: 40 MG, QD (NIGHT)
     Route: 065
  105. SIMVASTATIN [Suspect]
     Active Substance: SIMVASTATIN
     Dosage: 40 MG, QD (NIGHT)
     Route: 065
  106. CETIRIZINE HYDROCHLORIDE [Suspect]
     Active Substance: CETIRIZINE HYDROCHLORIDE
     Indication: Product used for unknown indication
     Dosage: 10 MG, QD (MORNING, OFF LABEL USE)
     Route: 048
  107. CETIRIZINE HYDROCHLORIDE [Suspect]
     Active Substance: CETIRIZINE HYDROCHLORIDE
     Dosage: 1 DOSAGE FORM, QD (MORNING, INGREDIENT CETRIZINE 10MG, HYDROCHLOROTHIADIDE 2MG)
     Route: 065
  108. CETIRIZINE HYDROCHLORIDE [Suspect]
     Active Substance: CETIRIZINE HYDROCHLORIDE
     Dosage: 62.5 MG, QD (MORNING)
     Route: 065
  109. CETIRIZINE HYDROCHLORIDE [Suspect]
     Active Substance: CETIRIZINE HYDROCHLORIDE
     Dosage: 10 MG, QD (MORNING)
     Route: 065
  110. CETIRIZINE HYDROCHLORIDE [Suspect]
     Active Substance: CETIRIZINE HYDROCHLORIDE
     Dosage: 10 MG, QD (MORNING)
     Route: 065
  111. CETIRIZINE HYDROCHLORIDE [Suspect]
     Active Substance: CETIRIZINE HYDROCHLORIDE
     Dosage: 10 MG, QD (MORNING); OFF LABEL USE
     Route: 065
  112. CETIRIZINE HYDROCHLORIDE [Suspect]
     Active Substance: CETIRIZINE HYDROCHLORIDE
     Dosage: 10 MG, QD (MORNING)
     Route: 048
  113. CETIRIZINE HYDROCHLORIDE [Suspect]
     Active Substance: CETIRIZINE HYDROCHLORIDE
     Dosage: 10 MG, QD (MORNING)
     Route: 048
  114. CETIRIZINE HYDROCHLORIDE [Suspect]
     Active Substance: CETIRIZINE HYDROCHLORIDE
     Dosage: 10 MG, QD (MORNING); OFF LABEL USE
     Route: 065
  115. CETIRIZINE HYDROCHLORIDE [Suspect]
     Active Substance: CETIRIZINE HYDROCHLORIDE
     Dosage: 10 MG, QD (MORNING)
     Route: 065
  116. CETIRIZINE HYDROCHLORIDE [Suspect]
     Active Substance: CETIRIZINE HYDROCHLORIDE
     Dosage: 10 MG, QD (MORNING)
     Route: 048
  117. DIGOXIN [Suspect]
     Active Substance: DIGOXIN
     Indication: Cerebrovascular accident prophylaxis
     Dosage: 62.5 UG, QD (OFF LABEL USE)
     Route: 065
  118. DIGOXIN [Suspect]
     Active Substance: DIGOXIN
     Dosage: 62.5 UG, QD (MORNING)
     Route: 065
  119. DIGOXIN [Suspect]
     Active Substance: DIGOXIN
     Dosage: 1 UG, QD
     Route: 065
  120. DIGOXIN [Suspect]
     Active Substance: DIGOXIN
     Dosage: 62 UG, QD (OFF LABEL USE)
     Route: 065
  121. DIGOXIN [Suspect]
     Active Substance: DIGOXIN
     Dosage: 4 UG, (OFF LABEL USE)
     Route: 065
  122. DIGOXIN [Suspect]
     Active Substance: DIGOXIN
     Dosage: 50 MG, QD (MORNING, OFF LABEL USE)
     Route: 065
  123. DIGOXIN [Suspect]
     Active Substance: DIGOXIN
     Dosage: 63 UG, QD (OFF LABEL USE)
     Route: 065
  124. DIGOXIN [Suspect]
     Active Substance: DIGOXIN
     Dosage: 63 DOSAGE FORM, QD (OFF LABEL USE)
     Route: 048
  125. DIGOXIN [Suspect]
     Active Substance: DIGOXIN
     Dosage: 4 UG, QD
     Route: 065
  126. DIGOXIN [Suspect]
     Active Substance: DIGOXIN
     Dosage: 62.5 UG, ONCE DAILY (QD) (MORNING)
     Route: 065
  127. DIGOXIN [Suspect]
     Active Substance: DIGOXIN
     Dosage: 62.5 UG, QD/ 62.5 MICROGRAM, ONCE DAILY (QD) (MORNING)
     Route: 065
  128. DIGOXIN [Suspect]
     Active Substance: DIGOXIN
     Dosage: 62.5 GRAM, QD
     Route: 065
  129. DIGOXIN [Suspect]
     Active Substance: DIGOXIN
     Dosage: 62 MICROGRAM, ONCE A DAY (MORNING)
     Route: 065
  130. DIGOXIN [Suspect]
     Active Substance: DIGOXIN
     Dosage: 63 UG, QD
     Route: 065
  131. DIGOXIN [Suspect]
     Active Substance: DIGOXIN
     Dosage: 50 MG, QD (MORNING)
     Route: 048
  132. DIGOXIN [Suspect]
     Active Substance: DIGOXIN
     Dosage: 1 UG, QD
     Route: 065
  133. DIGOXIN [Suspect]
     Active Substance: DIGOXIN
     Dosage: 62.5 UG, OD (IN MORNING)
     Route: 065
  134. DIGOXIN [Suspect]
     Active Substance: DIGOXIN
     Dosage: 62.5 UG, QD (MORNING)
     Route: 065
  135. DIGOXIN [Suspect]
     Active Substance: DIGOXIN
     Dosage: 62.5 UG, QD (MORNING)
     Route: 065
  136. DIGOXIN [Suspect]
     Active Substance: DIGOXIN
     Dosage: 63 DOSAGE FORM, QD
     Route: 065
  137. DIGOXIN [Suspect]
     Active Substance: DIGOXIN
     Dosage: 4 UG, QD (4 MICROGRAM)
     Route: 065
  138. DIGOXIN [Suspect]
     Active Substance: DIGOXIN
     Dosage: 62.5 UG, QD (MORNING)
     Route: 065
  139. DIGOXIN [Suspect]
     Active Substance: DIGOXIN
     Dosage: 62.5 UG, QD (MORNING)
     Route: 065
  140. HYDROCHLOROTHIAZIDE [Suspect]
     Active Substance: HYDROCHLOROTHIAZIDE
     Indication: Cerebrovascular accident prophylaxis
     Dosage: 2 MG, QD (MORNING)
     Route: 048
  141. HYDROCHLOROTHIAZIDE [Suspect]
     Active Substance: HYDROCHLOROTHIAZIDE
     Dosage: 2 MG, QD (MORNING, 1 DOSAGE FORM, OFF LABEL USE)
     Route: 048
  142. HYDROCHLOROTHIAZIDE [Suspect]
     Active Substance: HYDROCHLOROTHIAZIDE
     Dosage: 1 DOSAGE FORM, QD (MORNING)
     Route: 048
  143. HYDROCHLOROTHIAZIDE [Suspect]
     Active Substance: HYDROCHLOROTHIAZIDE
     Dosage: 10 MG, QD (10 MG/ML)
     Route: 048
  144. HYDROCHLOROTHIAZIDE [Suspect]
     Active Substance: HYDROCHLOROTHIAZIDE
     Dosage: 1 DOSAGE FORM, QD (MORNING)
     Route: 065
  145. HYDROCHLOROTHIAZIDE [Suspect]
     Active Substance: HYDROCHLOROTHIAZIDE
     Dosage: 2 MG, QD (MORNING)
     Route: 050
  146. HYDROCHLOROTHIAZIDE [Suspect]
     Active Substance: HYDROCHLOROTHIAZIDE
     Dosage: 2 MG, QD (MORNING)
     Route: 048
  147. HYDROCHLOROTHIAZIDE [Suspect]
     Active Substance: HYDROCHLOROTHIAZIDE
     Dosage: 2 MG, QD
     Route: 048
  148. HYDROCHLOROTHIAZIDE [Suspect]
     Active Substance: HYDROCHLOROTHIAZIDE
     Dosage: 2 MG, QD (MORNING)
     Route: 048
  149. HYDROCHLOROTHIAZIDE [Suspect]
     Active Substance: HYDROCHLOROTHIAZIDE
     Dosage: 10 MG, QD 10 MILLIGRAM/ML
     Route: 048
  150. HYDROCHLOROTHIAZIDE [Suspect]
     Active Substance: HYDROCHLOROTHIAZIDE
     Dosage: 2 MG, QD (MORNING)
     Route: 048
  151. HYDROCHLOROTHIAZIDE [Suspect]
     Active Substance: HYDROCHLOROTHIAZIDE
     Dosage: 1 DOSAGE FORM, ONCE A DAY (MORNING)
     Route: 050
  152. ISOSORBIDE [Suspect]
     Active Substance: ISOSORBIDE
     Indication: Product used for unknown indication
     Dosage: 50 MG, QD (MORNING)
     Route: 048
  153. ISOSORBIDE [Suspect]
     Active Substance: ISOSORBIDE
     Dosage: 50 MG, QD (MORNING)
     Route: 065
  154. ISOSORBIDE [Suspect]
     Active Substance: ISOSORBIDE
     Dosage: 50 MG, ONCE DAILY (QD) (MORNING)
     Route: 065
  155. ISOSORBIDE [Suspect]
     Active Substance: ISOSORBIDE
     Dosage: 50 MG, ONCE DAILY (QD) (MORNING)
     Route: 065
  156. ISOSORBIDE [Suspect]
     Active Substance: ISOSORBIDE
     Dosage: 50 MG, QD (MORNING)
     Route: 048
  157. ISOSORBIDE [Suspect]
     Active Substance: ISOSORBIDE
     Dosage: 50 MG, QD (MORNING)
     Route: 048
  158. ISOSORBIDE DINITRATE [Suspect]
     Active Substance: ISOSORBIDE DINITRATE
     Indication: Product used for unknown indication
     Dosage: 50 MG, QD (MORNING)
     Route: 048
  159. ISOSORBIDE DINITRATE [Suspect]
     Active Substance: ISOSORBIDE DINITRATE
     Dosage: UNK
     Route: 048
  160. ISOSORBIDE DINITRATE [Suspect]
     Active Substance: ISOSORBIDE DINITRATE
     Dosage: 50 MG, QD
     Route: 048
  161. ISOSORBIDE DINITRATE [Suspect]
     Active Substance: ISOSORBIDE DINITRATE
     Dosage: 50 MG, QD (MORNING)
     Route: 048
  162. ISOSORBIDE DINITRATE [Suspect]
     Active Substance: ISOSORBIDE DINITRATE
     Dosage: 50 MG, QD (MORNING)
     Route: 065
  163. ISOSORBIDE DINITRATE [Suspect]
     Active Substance: ISOSORBIDE DINITRATE
     Dosage: 50 MG, QD (MORNING)
     Route: 048
  164. ISOSORBIDE DINITRATE [Suspect]
     Active Substance: ISOSORBIDE DINITRATE
     Dosage: 50 MG, QD (MORNING)
     Route: 048
  165. ISOSORBIDE DINITRATE [Suspect]
     Active Substance: ISOSORBIDE DINITRATE
     Dosage: 50 MG, QD
     Route: 048
  166. ISOSORBIDE MONONITRATE [Suspect]
     Active Substance: ISOSORBIDE MONONITRATE
     Indication: Product used for unknown indication
     Dosage: 50 MG, QD (MORNING, FORMUATION- DURULE OFF LABEL USE)
     Route: 048
  167. ISOSORBIDE MONONITRATE [Suspect]
     Active Substance: ISOSORBIDE MONONITRATE
     Dosage: UNK (FORMUATION- DURULE OFF LABEL USE)
     Route: 048
  168. ISOSORBIDE MONONITRATE [Suspect]
     Active Substance: ISOSORBIDE MONONITRATE
     Dosage: 50 MG, ONCE DAILY (QD) (MORNING)
     Route: 048
  169. ISOSORBIDE MONONITRATE [Suspect]
     Active Substance: ISOSORBIDE MONONITRATE
     Dosage: UNK
     Route: 065
  170. ISOSORBIDE MONONITRATE [Suspect]
     Active Substance: ISOSORBIDE MONONITRATE
     Dosage: 50 MG, QD (MORNING)
     Route: 050
  171. ISOSORBIDE MONONITRATE [Suspect]
     Active Substance: ISOSORBIDE MONONITRATE
     Dosage: UNK
     Route: 048
  172. ISOSORBIDE MONONITRATE [Suspect]
     Active Substance: ISOSORBIDE MONONITRATE
     Dosage: 50 MILLIGRAM, QD (MORNING)
     Route: 048
  173. ISOSORBIDE MONONITRATE [Suspect]
     Active Substance: ISOSORBIDE MONONITRATE
     Dosage: UNK
     Route: 048
  174. ISOSORBIDE MONONITRATE [Suspect]
     Active Substance: ISOSORBIDE MONONITRATE
     Dosage: UNK
     Route: 065
  175. ISOSORBIDE MONONITRATE [Suspect]
     Active Substance: ISOSORBIDE MONONITRATE
     Dosage: 50 MG, ONCE A DAY (MORNING)
     Route: 048
  176. ISOSORBIDE MONONITRATE [Suspect]
     Active Substance: ISOSORBIDE MONONITRATE
     Dosage: 50 MG, ONCE A DAY (MORNING)
     Route: 048
  177. LANSOPRAZOLE [Suspect]
     Active Substance: LANSOPRAZOLE
     Indication: Atrial fibrillation
     Dosage: 10 MG (1 DAY) / 1 / 10 MILLIGRAM / 1 DAYS, QD, (OFF LABEL USE)
     Route: 065
     Dates: start: 20180207
  178. LANSOPRAZOLE [Suspect]
     Active Substance: LANSOPRAZOLE
     Dosage: 5 MG, QD
     Route: 065
  179. LANSOPRAZOLE [Suspect]
     Active Substance: LANSOPRAZOLE
     Dosage: 10 MILLIGRAM, QD; 5MG, QD
     Route: 065
  180. LANSOPRAZOLE [Suspect]
     Active Substance: LANSOPRAZOLE
     Dosage: 5 MG, QD
     Route: 065
     Dates: end: 20180218
  181. LANSOPRAZOLE [Suspect]
     Active Substance: LANSOPRAZOLE
     Dosage: 5 MG, QD
     Route: 065
  182. LANSOPRAZOLE [Suspect]
     Active Substance: LANSOPRAZOLE
     Dosage: 10 MG QD, (10 MILLIGRAM, QD; 5MG, QD)
     Route: 065
  183. LANSOPRAZOLE [Suspect]
     Active Substance: LANSOPRAZOLE
     Dosage: 10 MG, QD, (10 MG (1 DAY))
     Route: 065
  184. LANSOPRAZOLE [Suspect]
     Active Substance: LANSOPRAZOLE
     Dosage: 5 MG, QD
     Route: 065
  185. LANSOPRAZOLE [Suspect]
     Active Substance: LANSOPRAZOLE
     Dosage: 5 MG, QD (10 MG (1 DAY)/ 1/ 10 MILLIGRAM/ 1 DAYS)
     Route: 065
  186. LANSOPRAZOLE [Suspect]
     Active Substance: LANSOPRAZOLE
     Dosage: 5 MG, QD (10 MG QD)
     Route: 065
  187. LANSOPRAZOLE [Suspect]
     Active Substance: LANSOPRAZOLE
     Dosage: 10 MG, QD
     Route: 065
  188. LANSOPRAZOLE [Suspect]
     Active Substance: LANSOPRAZOLE
     Dosage: 10 MG (1 DAY)
     Route: 065
  189. LANSOPRAZOLE [Suspect]
     Active Substance: LANSOPRAZOLE
     Dosage: 10 MG, QD (OFF LABEL USE)
     Route: 065
  190. LANSOPRAZOLE [Suspect]
     Active Substance: LANSOPRAZOLE
     Dosage: 10 MG, QD
     Route: 065
  191. LANSOPRAZOLE [Suspect]
     Active Substance: LANSOPRAZOLE
     Dosage: 5 MG, QD
     Route: 065
  192. LANSOPRAZOLE [Suspect]
     Active Substance: LANSOPRAZOLE
     Dosage: 10 MILLIGRAM, QD, (10 MG (1 DAY))
     Route: 065
  193. LANSOPRAZOLE [Suspect]
     Active Substance: LANSOPRAZOLE
     Dosage: 10 MG, QD
     Route: 065
  194. LANSOPRAZOLE [Suspect]
     Active Substance: LANSOPRAZOLE
     Dosage: 30 MG, QD (MORNING)
     Route: 065
  195. LANSOPRAZOLE [Suspect]
     Active Substance: LANSOPRAZOLE
     Dosage: 30 MG, QD MORNING
     Route: 065
  196. LANSOPRAZOLE [Suspect]
     Active Substance: LANSOPRAZOLE
     Dosage: 30 MG, QD (MORNING)
     Route: 065
  197. LANSOPRAZOLE [Suspect]
     Active Substance: LANSOPRAZOLE
     Dosage: 30 MG, QD (MORNING)
     Route: 065
  198. LANSOPRAZOLE [Suspect]
     Active Substance: LANSOPRAZOLE
     Dosage: 10 MG, QD
     Route: 065
  199. LANSOPRAZOLE [Suspect]
     Active Substance: LANSOPRAZOLE
     Dosage: UNK
     Route: 065
  200. LANSOPRAZOLE [Suspect]
     Active Substance: LANSOPRAZOLE
     Dosage: 10 MG, QD
     Route: 065
  201. LANSOPRAZOLE [Suspect]
     Active Substance: LANSOPRAZOLE
     Dosage: 30 MG, ONCE DAILY (QD)
     Route: 065
  202. LANSOPRAZOLE [Suspect]
     Active Substance: LANSOPRAZOLE
     Dosage: 30 MG, ONCE DAILY (QD)
     Route: 065
  203. LANSOPRAZOLE [Suspect]
     Active Substance: LANSOPRAZOLE
     Dosage: 10 MG, QD  (10 MILLIGRAM, QD; 5 MG, QD)
     Route: 065
  204. LANSOPRAZOLE [Suspect]
     Active Substance: LANSOPRAZOLE
     Dosage: 30 MG, ONCE DAILY (QD)
     Route: 065
  205. LEVOTHYROXINE SODIUM [Suspect]
     Active Substance: LEVOTHYROXINE SODIUM
     Indication: Product used for unknown indication
     Dosage: 12 UG, QD (1 DF 50G, MORNING)
     Route: 065
  206. LEVOTHYROXINE SODIUM [Suspect]
     Active Substance: LEVOTHYROXINE SODIUM
     Dosage: 50 G, QD (1 DF)
     Route: 065
  207. LEVOTHYROXINE SODIUM [Suspect]
     Active Substance: LEVOTHYROXINE SODIUM
     Dosage: 125 UG, QD (MORNING)
     Route: 065
  208. LEVOTHYROXINE SODIUM [Suspect]
     Active Substance: LEVOTHYROXINE SODIUM
     Dosage: 10 MG, QD (5MG QD)
     Route: 065
  209. LEVOTHYROXINE SODIUM [Suspect]
     Active Substance: LEVOTHYROXINE SODIUM
     Dosage: 5 MG, QD
     Route: 065
  210. LEVOTHYROXINE SODIUM [Suspect]
     Active Substance: LEVOTHYROXINE SODIUM
     Dosage: 30 MG, QD (MORNING) (30 MG/ML)
     Route: 065
  211. LEVOTHYROXINE SODIUM [Suspect]
     Active Substance: LEVOTHYROXINE SODIUM
     Dosage: 50 G, QD (1 DF)
     Route: 065
  212. LEVOTHYROXINE SODIUM [Suspect]
     Active Substance: LEVOTHYROXINE SODIUM
     Dosage: 1 DOSAGE FORM, QD (OFF LABEL USE FORMULATION- POWDER FOR INFUSION)
     Route: 065
  213. LEVOTHYROXINE SODIUM [Suspect]
     Active Substance: LEVOTHYROXINE SODIUM
     Dosage: 50 MG, QD
     Route: 065
  214. LEVOTHYROXINE SODIUM [Suspect]
     Active Substance: LEVOTHYROXINE SODIUM
     Dosage: 50 UG, QD (MORNING)
     Route: 065
  215. LEVOTHYROXINE SODIUM [Suspect]
     Active Substance: LEVOTHYROXINE SODIUM
     Dosage: 50 MG
     Route: 066
  216. LEVOTHYROXINE SODIUM [Suspect]
     Active Substance: LEVOTHYROXINE SODIUM
     Dosage: 12 UG, QD
     Route: 065
  217. LEVOTHYROXINE SODIUM [Suspect]
     Active Substance: LEVOTHYROXINE SODIUM
     Dosage: 12 UG, QD
     Route: 048
  218. LEVOTHYROXINE SODIUM [Suspect]
     Active Substance: LEVOTHYROXINE SODIUM
     Dosage: 50 UG, QD (MORNING)
     Route: 065
  219. LEVOTHYROXINE SODIUM [Suspect]
     Active Substance: LEVOTHYROXINE SODIUM
     Dosage: 1 DOSAGE FORM, QD
     Route: 065
  220. LEVOTHYROXINE SODIUM [Suspect]
     Active Substance: LEVOTHYROXINE SODIUM
     Dosage: 50 GRAM, QD
     Route: 065
  221. LEVOTHYROXINE SODIUM [Suspect]
     Active Substance: LEVOTHYROXINE SODIUM
     Dosage: 125 UG, QD (MORNING) 1 DF - 50G, ONCE DAILY (QD)
     Route: 065
  222. LEVOTHYROXINE SODIUM [Suspect]
     Active Substance: LEVOTHYROXINE SODIUM
     Dosage: 125 UG, QD
     Route: 065
  223. LEVOTHYROXINE SODIUM [Suspect]
     Active Substance: LEVOTHYROXINE SODIUM
     Dosage: 50 MCG, ONCE DAILY (QD) (MORNING)
     Route: 065
  224. LEVOTHYROXINE SODIUM [Suspect]
     Active Substance: LEVOTHYROXINE SODIUM
     Dosage: 12 UG, QD
     Route: 065
  225. LEVOTHYROXINE SODIUM [Suspect]
     Active Substance: LEVOTHYROXINE SODIUM
     Dosage: 125 UG, QD
     Route: 065
  226. LEVOTHYROXINE SODIUM [Suspect]
     Active Substance: LEVOTHYROXINE SODIUM
     Dosage: 50 MG; 1 DF, UNK
     Route: 065
  227. LEVOTHYROXINE SODIUM [Suspect]
     Active Substance: LEVOTHYROXINE SODIUM
     Dosage: 50 UG, QD (MORNING)
     Route: 065
  228. LEVOTHYROXINE SODIUM [Suspect]
     Active Substance: LEVOTHYROXINE SODIUM
     Dosage: 12 UG, QD
     Route: 065
  229. LEVOTHYROXINE SODIUM [Suspect]
     Active Substance: LEVOTHYROXINE SODIUM
     Dosage: 125 UG, QD (MORNING)
     Route: 048
  230. LEVOTHYROXINE SODIUM [Suspect]
     Active Substance: LEVOTHYROXINE SODIUM
     Dosage: 30 UG, QD (30 MG, ONCE DAILY MORNING)
     Route: 065
  231. LEVOTHYROXINE SODIUM [Suspect]
     Active Substance: LEVOTHYROXINE SODIUM
     Dosage: 5 MG, QD (MORNING)
     Route: 065
  232. LEVOTHYROXINE SODIUM [Suspect]
     Active Substance: LEVOTHYROXINE SODIUM
     Dosage: 1 DOSAGE FORM, QD (TABLET)
     Route: 065
  233. LEVOTHYROXINE SODIUM [Suspect]
     Active Substance: LEVOTHYROXINE SODIUM
     Dosage: 10 MG, QD  (10 MILLIGRAM, QD; 5 MG, QD)
     Route: 065
  234. LEVOTHYROXINE SODIUM [Suspect]
     Active Substance: LEVOTHYROXINE SODIUM
     Dosage: 12 UG, QD 1 DF - 50G, ONCE DAILY (QD)125 UG, QD (MORNING)
     Route: 065
  235. LEVOTHYROXINE SODIUM [Suspect]
     Active Substance: LEVOTHYROXINE SODIUM
     Dosage: 125 UG, QD
     Route: 065
  236. LEVOTHYROXINE SODIUM [Suspect]
     Active Substance: LEVOTHYROXINE SODIUM
     Dosage: 30 MG, QD; 30 MG/ML
     Route: 065
  237. LEVOTHYROXINE SODIUM [Suspect]
     Active Substance: LEVOTHYROXINE SODIUM
     Dosage: 50 UG, QD
     Route: 065
  238. LEVOTHYROXINE SODIUM [Suspect]
     Active Substance: LEVOTHYROXINE SODIUM
     Dosage: 125 UG, QD
     Route: 065
  239. LEVOTHYROXINE SODIUM [Suspect]
     Active Substance: LEVOTHYROXINE SODIUM
     Dosage: 50 UG, QD (MORNING)
     Route: 065
  240. LEVOTHYROXINE SODIUM [Suspect]
     Active Substance: LEVOTHYROXINE SODIUM
     Dosage: 125 UG, QD
     Route: 065
  241. LEVOTHYROXINE SODIUM [Suspect]
     Active Substance: LEVOTHYROXINE SODIUM
     Dosage: 5 MG, QD (MORNING)
     Route: 050
  242. LEVOTHYROXINE SODIUM [Suspect]
     Active Substance: LEVOTHYROXINE SODIUM
     Dosage: UNK, QD
     Route: 065
  243. LEVOTHYROXINE SODIUM [Suspect]
     Active Substance: LEVOTHYROXINE SODIUM
     Dosage: 1 DOSAGE FORM
     Route: 065
  244. LEVOTHYROXINE SODIUM [Suspect]
     Active Substance: LEVOTHYROXINE SODIUM
     Dosage: 1 G, 50 MICROGRAM (UG), QD (MORNING)
     Route: 065
  245. LEVOTHYROXINE SODIUM [Suspect]
     Active Substance: LEVOTHYROXINE SODIUM
     Dosage: 50 MCG, ONCE DAILY (QD) (MORNING)
     Route: 065
  246. LEVOTHYROXINE SODIUM [Suspect]
     Active Substance: LEVOTHYROXINE SODIUM
     Dosage: 50 UG, QD (50 MCG, 1 DF, UNK)
     Route: 065
  247. LEVOTHYROXINE SODIUM [Suspect]
     Active Substance: LEVOTHYROXINE SODIUM
     Dosage: UNK, QD
     Route: 065
  248. LEVOTHYROXINE SODIUM [Suspect]
     Active Substance: LEVOTHYROXINE SODIUM
     Indication: Product used for unknown indication
     Dosage: UNK
     Route: 065
  249. LEVOTHYROXINE SODIUM [Suspect]
     Active Substance: LEVOTHYROXINE SODIUM
     Dosage: 50 MG, QD (50 MILLIGRAM; 1 DF, UNK)
     Route: 065
  250. LINAGLIPTIN [Suspect]
     Active Substance: LINAGLIPTIN
     Indication: Product used for unknown indication
     Dosage: 5 MG, QD (MORNING, OFF LABEL USE)
     Route: 065
  251. LINAGLIPTIN [Suspect]
     Active Substance: LINAGLIPTIN
     Dosage: 5 MG, QD
     Route: 065
  252. LINAGLIPTIN [Suspect]
     Active Substance: LINAGLIPTIN
     Dosage: 5 MG, ONCE DAILY (QD) (MORNING)
     Route: 065
  253. LINAGLIPTIN [Suspect]
     Active Substance: LINAGLIPTIN
     Dosage: 5 UG, QD (5 MG, ONCE DAILY (QD) (MORNING))
     Route: 065
  254. LINAGLIPTIN [Suspect]
     Active Substance: LINAGLIPTIN
     Dosage: 5 MG, ONCE A DAY (MORNING)
     Route: 065
  255. LINAGLIPTIN [Suspect]
     Active Substance: LINAGLIPTIN
     Dosage: UNK
     Route: 065
  256. LINAGLIPTIN [Suspect]
     Active Substance: LINAGLIPTIN
     Dosage: 5 UG, QD (5 MG, ONCE DAILY (QD))
     Route: 065
  257. LINAGLIPTIN [Suspect]
     Active Substance: LINAGLIPTIN
     Dosage: 5 UG, QD (MORNING)
     Route: 065
  258. LINAGLIPTIN [Suspect]
     Active Substance: LINAGLIPTIN
     Dosage: 5 MG, ONCE DAILY (QD) (MORNING)
     Route: 065
  259. LINAGLIPTIN [Suspect]
     Active Substance: LINAGLIPTIN
     Dosage: 40 MG, QD (NIGHT)
     Route: 048
  260. LINAGLIPTIN [Suspect]
     Active Substance: LINAGLIPTIN
     Dosage: 5 MG, QD (MORNING)
     Route: 065
  261. IMDUR [Suspect]
     Active Substance: ISOSORBIDE MONONITRATE
     Indication: Product used for unknown indication
     Dosage: 50 MG, QD (MORNING)
     Route: 048
  262. IMDUR [Suspect]
     Active Substance: ISOSORBIDE MONONITRATE
     Dosage: 50 MG, QD
     Route: 048
  263. IMDUR [Suspect]
     Active Substance: ISOSORBIDE MONONITRATE
     Dosage: UNK
     Route: 048
  264. IMDUR [Suspect]
     Active Substance: ISOSORBIDE MONONITRATE
     Dosage: 50 MG, ONCE DAILY (QD) (MORNING)
     Route: 048
  265. IMDUR [Suspect]
     Active Substance: ISOSORBIDE MONONITRATE
     Dosage: 50 MG, ONCE DAILY (QD) (MORNING)
     Route: 065
  266. IMDUR [Suspect]
     Active Substance: ISOSORBIDE MONONITRATE
     Dosage: UNK
     Route: 048
  267. IMDUR [Suspect]
     Active Substance: ISOSORBIDE MONONITRATE
     Dosage: 50 MG, ONCE DAILY (QD) (IN MORNING)
     Route: 065
  268. IMDUR [Suspect]
     Active Substance: ISOSORBIDE MONONITRATE
     Dosage: 50 MG, QD (MORNING)
     Route: 048
  269. IMDUR [Suspect]
     Active Substance: ISOSORBIDE MONONITRATE
     Dosage: 50 MILLIGRAM, QD
     Route: 048
  270. BISOPROLOL [Suspect]
     Active Substance: BISOPROLOL
     Indication: Product used for unknown indication
     Dosage: 5 MILLIGRAM, ONCE A DAY
     Route: 065
     Dates: start: 20180207
  271. BISOPROLOL [Suspect]
     Active Substance: BISOPROLOL
     Dosage: 10 MILLIGRAM, ONCE A DAY
     Route: 048
  272. BISOPROLOL [Suspect]
     Active Substance: BISOPROLOL
     Dosage: 10 MILLIGRAM, ONCE A DAY
     Route: 048
  273. CANDESARTAN [Suspect]
     Active Substance: CANDESARTAN
     Indication: Cerebrovascular accident prophylaxis
     Dosage: 2 MG, QD MORNING; OFF LABEL USE
     Route: 048
  274. CANDESARTAN [Suspect]
     Active Substance: CANDESARTAN
     Dosage: 2 MG, ONCE DAILY (QD)
     Route: 048
  275. CANDESARTAN [Suspect]
     Active Substance: CANDESARTAN
     Dosage: 2 MG, QD
     Route: 048
  276. CANDESARTAN [Suspect]
     Active Substance: CANDESARTAN
     Dosage: 2 MG ONCE DAILY/ 2 MG, QD MORNING
     Route: 048
  277. CANDESARTAN [Suspect]
     Active Substance: CANDESARTAN
     Dosage: UNK
     Route: 065
  278. CANDESARTAN [Suspect]
     Active Substance: CANDESARTAN
     Dosage: 2 MG, QD, 2 MG, ONCE DAILY (QD)
     Route: 048
  279. CANDESARTAN [Suspect]
     Active Substance: CANDESARTAN
     Dosage: 2 MG ONCE DAILY/ 2 MG, QD MORNING
     Route: 048
  280. CANDESARTAN [Suspect]
     Active Substance: CANDESARTAN
     Dosage: 2 MG, QD
     Route: 048
  281. CETIRIZINE [Suspect]
     Active Substance: CETIRIZINE HYDROCHLORIDE
     Indication: Product used for unknown indication
     Dosage: 10 MG, QD (MORNING)
     Route: 048
  282. CETIRIZINE [Suspect]
     Active Substance: CETIRIZINE HYDROCHLORIDE
     Dosage: 1 DOSAGE FORM, QD (MORNING), INGREDIENT (CETIRIZINE): 10MG; INGREDIENT (HYDROCHLOROTHIAZIDE)
     Route: 048
  283. CETIRIZINE [Suspect]
     Active Substance: CETIRIZINE HYDROCHLORIDE
     Dosage: 10 MG, QD (MORNING)
     Route: 048
  284. CETIRIZINE [Suspect]
     Active Substance: CETIRIZINE HYDROCHLORIDE
     Dosage: 10 MG, QD (MORNING)
     Route: 048
  285. CETIRIZINE [Suspect]
     Active Substance: CETIRIZINE HYDROCHLORIDE
     Dosage: 10 MG, QD
     Route: 065
  286. CETIRIZINE [Suspect]
     Active Substance: CETIRIZINE HYDROCHLORIDE
     Dosage: 6.25 UG, QD (MORNING)
     Route: 065
  287. CETIRIZINE [Suspect]
     Active Substance: CETIRIZINE HYDROCHLORIDE
     Dosage: 10 MG, QD (MORNING)
     Route: 048
  288. LINAGLIPTIN [Suspect]
     Active Substance: LINAGLIPTIN
     Indication: Product used for unknown indication
     Dosage: 5 MG, QD
     Route: 065

REACTIONS (6)
  - Subarachnoid haemorrhage [Recovered/Resolved with Sequelae]
  - Intentional product misuse [Unknown]
  - Intentional product use issue [Unknown]
  - Subarachnoid haemorrhage [Recovered/Resolved with Sequelae]
  - Off label use [Recovered/Resolved with Sequelae]
  - Off label use [Recovered/Resolved with Sequelae]

NARRATIVE: CASE EVENT DATE: 20180207
